FAERS Safety Report 5055354-2 (Version None)
Quarter: 2006Q3

REPORT INFORMATION
  Report Type: 
  Country: None (occurrence: None)
  Receive Date: 20060714
  Receipt Date: 20060629
  Transmission Date: 20061208
  Serious: Yes (Other)
  Sender: FDA-Public Use
  Company Number: 14385

PATIENT
  Sex: Female
  Weight: 64 kg

DRUGS (5)
  1. ATRACURIUM [Suspect]
     Indication: GENERAL ANAESTHESIA
     Dosage: 0.5 MG/KG ONCE IV
     Route: 042
  2. MIDAZOLAM HYDROCHLORIDE [Concomitant]
  3. FENTANYL [Concomitant]
  4. DIPRIVAN [Concomitant]
  5. TRACRIUM [Concomitant]

REACTIONS (2)
  - ANAESTHETIC COMPLICATION [None]
  - ANAPHYLACTOID SHOCK [None]
